FAERS Safety Report 4334948-3 (Version None)
Quarter: 2004Q2

REPORT INFORMATION
  Report Type: 
  Country: None (occurrence: None)
  Receive Date: 20040405
  Receipt Date: 20031113
  Transmission Date: 20050107
  Serious: Yes (Life-Threatening, Hospitalization)
  Sender: FDA-Public Use
  Company Number: 2004206374FR

PATIENT
  Age: 14 Year
  Sex: Male
  Weight: 43 kg

DRUGS (2)
  1. GENOTROPIN [Suspect]
     Indication: HYPOPITUITARISM
     Dosage: 11.2 MG, WEEKLY (7 INJECTIONS), SUBCUTANEOUS
     Route: 058
     Dates: start: 20001206
  2. LEVOTHYROXINE SODIUM [Concomitant]

REACTIONS (2)
  - CRANIOPHARYNGIOMA [None]
  - NEOPLASM RECURRENCE [None]
